FAERS Safety Report 7443462-8 (Version None)
Quarter: 2011Q2

REPORT INFORMATION
  Report Type: 
  Country: None (occurrence: None)
  Receive Date: 20110428
  Receipt Date: 20110415
  Transmission Date: 20111010
  Serious: Yes (Hospitalization, Other)
  Sender: FDA-Public Use
  Company Number: JP-JNJFOC-20110105859

PATIENT
  Sex: Female
  Weight: 41.3 kg

DRUGS (17)
  1. REMICADE [Suspect]
     Indication: CROHN'S DISEASE
     Dosage: TOTAL 10 INFUSIONS
     Route: 042
  2. REMICADE [Suspect]
     Dosage: 2 INFUSIONS AT THIS DOSE
     Route: 042
  3. PREDNISOLONE [Concomitant]
     Dosage: 20 MG DAILY IV
  4. REMICADE [Suspect]
     Route: 042
  5. BIOFERMIN [Concomitant]
     Indication: CROHN'S DISEASE
     Route: 048
  6. IMURAN [Concomitant]
     Indication: CROHN'S DISEASE
     Route: 048
  7. SULFASALAZINE [Concomitant]
     Indication: CROHN'S DISEASE
     Route: 048
  8. REMICADE [Suspect]
     Route: 042
  9. REMICADE [Suspect]
     Route: 042
  10. PREDNISOLONE [Concomitant]
     Dosage: 30 MG TAPERED DOWN TO 2.5 MG, ORAL
  11. ELENTAL [Concomitant]
     Indication: CROHN'S DISEASE
     Route: 048
  12. REMICADE [Suspect]
     Dosage: 2 INFUSIONS AT THIS DOSE
     Route: 042
  13. IMURAN [Concomitant]
     Route: 048
  14. PENTASA [Concomitant]
     Indication: CROHN'S DISEASE
     Route: 048
  15. REMICADE [Suspect]
     Dosage: 2 INFUSIONS AT THIS DOSE
     Route: 042
  16. COLONEL [Concomitant]
     Indication: CROHN'S DISEASE
     Route: 048
  17. PENTASA [Concomitant]
     Route: 048

REACTIONS (1)
  - TAKAYASU'S ARTERITIS [None]
